FAERS Safety Report 12053551 (Version 1)
Quarter: 2016Q1

REPORT INFORMATION
  Report Type: Report from Study
  Country: US (occurrence: US)
  Receive Date: 20160209
  Receipt Date: 20160209
  Transmission Date: 20160526
  Serious: No
  Sender: FDA-Public Use
  Company Number: US-ABBVIE-15P-163-1455743-00

PATIENT
  Age: 54 Year
  Sex: Female
  Weight: 95.34 kg

DRUGS (5)
  1. PREVACID [Concomitant]
     Active Substance: LANSOPRAZOLE
     Indication: GASTROOESOPHAGEAL REFLUX DISEASE
  2. HUMIRA [Suspect]
     Active Substance: ADALIMUMAB
     Indication: PSORIASIS
     Route: 058
     Dates: start: 2012
  3. HUMIRA [Suspect]
     Active Substance: ADALIMUMAB
     Indication: PSORIATIC ARTHROPATHY
  4. METHOTREXATE [Concomitant]
     Active Substance: METHOTREXATE
     Indication: PSORIATIC ARTHROPATHY
  5. NAPROSYN [Concomitant]
     Active Substance: NAPROXEN
     Indication: PAIN

REACTIONS (4)
  - Hypertension [Recovering/Resolving]
  - Psoriasis [Recovering/Resolving]
  - Headache [Recovering/Resolving]
  - Stress [Unknown]

NARRATIVE: CASE EVENT DATE: 201502
